FAERS Safety Report 6423698-5 (Version None)
Quarter: 2009Q4

REPORT INFORMATION
  Report Type: 
  Country: None (occurrence: None)
  Receive Date: 20091102
  Receipt Date: 20091027
  Transmission Date: 20100525
  Serious: Yes (Other)
  Sender: FDA-Public Use
  Company Number: GB-B.I. PHARMACEUTICALS,INC./RIDGEFIELD-2009-BP-12652YA

PATIENT
  Age: 83 Year
  Sex: Male
  Weight: 70 kg

DRUGS (5)
  1. TAMSULOSIN [Suspect]
     Indication: BENIGN PROSTATIC HYPERPLASIA
     Route: 048
     Dates: start: 20050201, end: 20090914
  2. BEZAFIBRATE (BEZAFIBRATE) [Concomitant]
     Indication: HYPERLIPIDAEMIA
     Route: 048
     Dates: start: 20070918
  3. CORACTEN (NIFEDIPINE) [Concomitant]
     Indication: HYPERTENSION
     Route: 048
     Dates: start: 20050113
  4. FINASTERIDE [Concomitant]
     Indication: BENIGN PROSTATIC HYPERPLASIA
     Route: 048
     Dates: start: 20080513, end: 20090817
  5. IRBESARTAN [Concomitant]
     Indication: HYPERTENSION
     Route: 048
     Dates: start: 20060124

REACTIONS (2)
  - RESTLESSNESS [None]
  - SOMNAMBULISM [None]
